FAERS Safety Report 25896016 (Version 3)
Quarter: 2025Q4

REPORT INFORMATION
  Report Type: Spontaneous
  Country: US (occurrence: US)
  Receive Date: 20251008
  Receipt Date: 20251125
  Transmission Date: 20260118
  Serious: Yes (Other)
  Sender: PFIZER
  Company Number: US-PFIZER INC-202400096291

PATIENT
  Age: 76 Year
  Sex: Female

DRUGS (1)
  1. CIBINQO [Suspect]
     Active Substance: ABROCITINIB
     Indication: Dermatitis atopic
     Dosage: 100 MG
     Dates: end: 2024

REACTIONS (2)
  - Hepatitis C [Recovered/Resolved]
  - Deafness [Unknown]

NARRATIVE: CASE EVENT DATE: 20240101
